FAERS Safety Report 5960830-1 (Version None)
Quarter: 2008Q4

REPORT INFORMATION
  Report Type: 
  Country: None (occurrence: None)
  Receive Date: 20081121
  Receipt Date: 20081112
  Transmission Date: 20090506
  Serious: Yes (Other)
  Sender: FDA-Public Use
  Company Number: GB-RANBAXY-2008RR-19265

PATIENT
  Age: 15 Year
  Sex: Female

DRUGS (3)
  1. GABAPENTIN [Suspect]
     Indication: HEADACHE
  2. RANCEPINE [Suspect]
  3. AMITRIPTYLINE HCL [Concomitant]

REACTIONS (3)
  - CHEST PAIN [None]
  - DRUG INEFFECTIVE [None]
  - DYSPNOEA [None]
